FAERS Safety Report 7151092-0 (Version None)
Quarter: 2010Q4

REPORT INFORMATION
  Report Type: 
  Country: None (occurrence: None)
  Receive Date: 20101122
  Receipt Date: 20101118
  Transmission Date: 20110411
  Serious: Yes (Death, Life-Threatening, Hospitalization)
  Sender: FDA-Public Use
  Company Number: 2009SP036558

PATIENT
  Age: 61 Year
  Sex: Male
  Weight: 65.6 kg

DRUGS (4)
  1. TEMODAL [Suspect]
     Indication: ASTROCYTOMA MALIGNANT
     Dosage: 200 MG/M2, QD, PO
     Route: 048
     Dates: start: 20060225, end: 20071218
  2. TEMODAL [Suspect]
     Indication: RECURRENT CANCER
     Dosage: 200 MG/M2, QD, PO
     Route: 048
     Dates: start: 20060225, end: 20071218
  3. NIMUSTINE HYDROCHLORIDE (NIMUSTINE HYDROCHLORIDE) [Suspect]
     Indication: PRODUCT USED FOR UNKNOWN INDICATION
     Dates: start: 20051007, end: 20051209
  4. DEPAKENE [Suspect]
     Indication: PROPHYLAXIS
     Dosage: PO
     Route: 048

REACTIONS (9)
  - ASTROCYTOMA MALIGNANT [None]
  - DISSEMINATED INTRAVASCULAR COAGULATION [None]
  - HISTIOCYTOSIS HAEMATOPHAGIC [None]
  - INFECTION [None]
  - MYELODYSPLASTIC SYNDROME TRANSFORMATION [None]
  - PERIODONTITIS [None]
  - PYREXIA [None]
  - RECURRENT CANCER [None]
  - RENAL FAILURE [None]
